FAERS Safety Report 4532103-5 (Version None)
Quarter: 2004Q4

REPORT INFORMATION
  Report Type: 
  Country: None (occurrence: None)
  Receive Date: 20041220
  Receipt Date: 20041208
  Transmission Date: 20050328
  Serious: Yes (Other)
  Sender: FDA-Public Use
  Company Number: JP-JNJFOC-20041203588

PATIENT
  Age: 41 Year
  Sex: Female

DRUGS (5)
  1. CLADRIBINE [Suspect]
     Route: 050
  2. CLADRIBINE [Suspect]
     Route: 050
  3. CLADRIBINE [Suspect]
     Route: 050
  4. CLADRIBINE [Suspect]
     Route: 050
  5. CLADRIBINE [Suspect]
     Indication: MYCOSIS FUNGOIDES
     Dosage: 7 CONSECUTIVE DAYS, EVERY 4 WEEKS, UP TO A MAXIMUM OF 6 CYCLES
     Route: 050

REACTIONS (2)
  - MYELODYSPLASTIC SYNDROME [None]
  - REFRACTORY ANAEMIA [None]
